FAERS Safety Report 23751371 (Version 1)
Quarter: 2024Q2

REPORT INFORMATION
  Report Type: Spontaneous
  Country: US (occurrence: None)
  Receive Date: 20240416
  Receipt Date: 20240416
  Transmission Date: 20240716
  Serious: No
  Sender: FDA-Public Use
  Company Number: None

PATIENT
  Age: 70 Year
  Sex: Male

DRUGS (2)
  1. EVEROLIMUS [Suspect]
     Active Substance: EVEROLIMUS
     Indication: Bone cancer
     Dosage: FREQUENCY : DAILY;?
  2. EVEROLIMUS [Suspect]
     Active Substance: EVEROLIMUS
     Indication: Metastasis

REACTIONS (7)
  - Stomatitis [None]
  - Diarrhoea [None]
  - Nausea [None]
  - Vomiting [None]
  - Frequent bowel movements [None]
  - Dehydration [None]
  - Adverse drug reaction [None]
